FAERS Safety Report 7688402-1 (Version None)
Quarter: 2011Q3

REPORT INFORMATION
  Report Type: 
  Country: None (occurrence: None)
  Receive Date: 20110817
  Receipt Date: 20110811
  Transmission Date: 20111222
  Serious: Yes (Hospitalization)
  Sender: FDA-Public Use
  Company Number: IT-ROCHE-764822

PATIENT
  Sex: Female
  Weight: 59 kg

DRUGS (3)
  1. LANSOPRAZOLE [Concomitant]
     Dates: start: 20100401
  2. BEVACIZUMAB [Suspect]
     Dosage: DOSE FORM: VIAL, TEMPORARILY INTERRUPTED. LAST DOSE PRIOR TO SAE : 15 FEB 2011
     Route: 042
     Dates: start: 20100423, end: 20110215
  3. PREGABALIN [Concomitant]
     Dates: start: 20101101

REACTIONS (1)
  - TACHYCARDIA [None]
